FAERS Safety Report 5033730-1 (Version None)
Quarter: 2006Q2

REPORT INFORMATION
  Report Type: 
  Country: None (occurrence: None)
  Receive Date: 20060623
  Receipt Date: 20060615
  Transmission Date: 20061013
  Serious: Yes (Other)
  Sender: FDA-Public Use
  Company Number: JP-MERCK-0606USA03241

PATIENT
  Age: 60 Year
  Sex: Female

DRUGS (6)
  1. ZOCOR [Suspect]
     Indication: HYPERLIPIDAEMIA
     Route: 048
     Dates: start: 20060530, end: 20060606
  2. NORVASC [Concomitant]
     Route: 048
     Dates: start: 20060410
  3. NU-LOTAN [Concomitant]
     Route: 048
     Dates: start: 20060529
  4. [THERAPY UNSPECIFIED] [Concomitant]
     Route: 048
     Dates: start: 20060410, end: 20060614
  5. LOXOPROFEN SODIUM [Concomitant]
     Route: 065
     Dates: start: 20060410, end: 20060614
  6. MYONAL [Concomitant]
     Route: 048
     Dates: start: 20060410, end: 20060614

REACTIONS (3)
  - ASTHENIA [None]
  - CHROMATURIA [None]
  - RHABDOMYOLYSIS [None]
